FAERS Safety Report 24115988 (Version 1)
Quarter: 2024Q3

REPORT INFORMATION
  Report Type: Spontaneous
  Country: GB (occurrence: GB)
  Receive Date: 20240722
  Receipt Date: 20240722
  Transmission Date: 20241017
  Serious: Yes (Other)
  Sender: GLAXOSMITHKLINE
  Company Number: None

PATIENT

DRUGS (1)
  1. SOTROVIMAB [Suspect]
     Active Substance: SOTROVIMAB
     Indication: COVID-19
     Dosage: UNK (500)
     Dates: start: 20240627

REACTIONS (5)
  - Pain [Not Recovered/Not Resolved]
  - Medication error [Unknown]
  - Extravasation [Unknown]
  - Insomnia [Unknown]
  - Crying [Unknown]

NARRATIVE: CASE EVENT DATE: 20240627
